FAERS Safety Report 5909167-7 (Version None)
Quarter: 2008Q4

REPORT INFORMATION
  Report Type: 
  Country: None (occurrence: None)
  Receive Date: 20081006
  Receipt Date: 20080924
  Transmission Date: 20090506
  Serious: Yes (Other)
  Sender: FDA-Public Use
  Company Number: US-PFIZER INC-2008081793

PATIENT
  Sex: Female
  Weight: 56.7 kg

DRUGS (7)
  1. LYRICA [Suspect]
     Indication: FIBROMYALGIA
     Route: 048
     Dates: start: 20070901
  2. XANAX [Suspect]
     Indication: ANXIETY
  3. HYDROCODONE BITARTRATE [Concomitant]
  4. ROBAXIN [Concomitant]
  5. TOPAMAX [Concomitant]
  6. ALLERGY MEDICATION [Concomitant]
  7. LASIX [Concomitant]

REACTIONS (12)
  - ANXIETY [None]
  - CONFUSIONAL STATE [None]
  - DELUSION [None]
  - DIZZINESS [None]
  - INSOMNIA [None]
  - IRRITABILITY [None]
  - MUSCULOSKELETAL DISORDER [None]
  - PARANOIA [None]
  - SOMNOLENCE [None]
  - UNEVALUABLE EVENT [None]
  - WEIGHT DECREASED [None]
  - WEIGHT INCREASED [None]
